FAERS Safety Report 9891903 (Version 1)
Quarter: 2014Q1

REPORT INFORMATION
  Report Type: Report from Study
  Country: US (occurrence: US)
  Receive Date: 20140212
  Receipt Date: 20140212
  Transmission Date: 20141002
  Serious: Yes (Other)
  Sender: FDA-Public Use
  Company Number: US-BAYER-2014-021812

PATIENT
  Age: 53 Year
  Sex: Male

DRUGS (1)
  1. STIVARGA [Suspect]
     Indication: COLON CANCER
     Dosage: 160MG, QD
     Route: 048
     Dates: start: 201401

REACTIONS (6)
  - Aphagia [None]
  - Asthenia [None]
  - Constipation [None]
  - Weight decreased [None]
  - Nausea [None]
  - Vomiting [None]
